FAERS Safety Report 5116737-5 (Version None)
Quarter: 2006Q3

REPORT INFORMATION
  Report Type: 
  Country: None (occurrence: None)
  Receive Date: 20060928
  Receipt Date: 20060518
  Transmission Date: 20061208
  Serious: Yes (Life-Threatening)
  Sender: FDA-Public Use
  Company Number: JP-MERCK-0605USA05313

PATIENT
  Age: 85 Year
  Sex: Female

DRUGS (14)
  1. PEPCID [Suspect]
     Indication: GASTRIC ULCER
     Route: 048
     Dates: end: 20060501
  2. MAGNESIUM OXIDE [Suspect]
     Indication: CONSTIPATION
     Route: 048
     Dates: end: 20060501
  3. BASEN [Concomitant]
     Indication: DIABETES MELLITUS
     Route: 065
     Dates: end: 20060502
  4. INSULIN HUMAN [Concomitant]
     Indication: DIABETES MELLITUS
     Route: 058
     Dates: end: 20060502
  5. RIFAMPIN [Concomitant]
     Indication: PNEUMONIA
     Route: 048
     Dates: start: 20051017
  6. ETHAMBUTOL HYDROCHLORIDE [Concomitant]
     Indication: PNEUMONIA
     Route: 048
     Dates: start: 20051017
  7. ISCOTIN [Concomitant]
     Indication: PNEUMONIA
     Route: 048
     Dates: start: 20051017
  8. PYDOXAL [Concomitant]
     Indication: PNEUMONIA
     Route: 048
     Dates: start: 20051017
  9. NORVASC [Concomitant]
     Indication: HYPERTENSION
     Route: 048
  10. COZAAR [Concomitant]
     Indication: HYPERTENSION
     Route: 048
  11. CILOSTAZOL [Concomitant]
     Indication: CEREBRAL INFARCTION
     Route: 048
  12. BIOFERMIN R [Concomitant]
     Indication: ENTEROCOLITIS
     Route: 048
  13. PROCYLIN [Concomitant]
     Indication: ARTERIOSCLEROSIS OBLITERANS
     Route: 048
  14. LASIX [Concomitant]
     Indication: CARDIAC FAILURE
     Route: 048

REACTIONS (9)
  - ASTERIXIS [None]
  - ASTHENIA [None]
  - CATAPLEXY [None]
  - CEREBRAL ATROPHY [None]
  - DEPRESSED LEVEL OF CONSCIOUSNESS [None]
  - DRUG LEVEL DECREASED [None]
  - HYPERMAGNESAEMIA [None]
  - ORAL INTAKE REDUCED [None]
  - SOMNOLENCE [None]
